FAERS Safety Report 9357841 (Version 2)
Quarter: 2013Q4

REPORT INFORMATION
  Report Type: Report from Study
  Country: DE (occurrence: DE)
  Receive Date: 20130620
  Receipt Date: 20131015
  Transmission Date: 20140711
  Serious: Yes (Hospitalization)
  Sender: FDA-Public Use
  Company Number: DE-ASTELLAS-2013US006319

PATIENT
  Age: 15 Year
  Sex: Female

DRUGS (2)
  1. TACROLIMUS OINTMENT [Suspect]
     Indication: DERMATITIS ATOPIC
     Dosage: 0.1 %, UNKNOWN/D
     Route: 061
     Dates: start: 200712, end: 2013
  2. TACROLIMUS OINTMENT [Suspect]
     Dosage: 0.1 %, OTHER
     Route: 061
     Dates: start: 20111129

REACTIONS (2)
  - Off label use [Unknown]
  - Epilepsy [Unknown]
